FAERS Safety Report 8340369 (Version 4)
Quarter: 2013Q1

REPORT INFORMATION
  Report Type: Report from Study
  Country: CA (occurrence: CA)
  Receive Date: 20120117
  Receipt Date: 20130103
  Transmission Date: 20140127
  Serious: Yes (Hospitalization, Other)
  Sender: FDA-Public Use
  Company Number: PHHO2012CA001021

PATIENT
  Age: 57 Year
  Sex: Male
  Weight: 99.1 kg

DRUGS (2)
  1. AMN107 [Suspect]
     Indication: CHRONIC MYELOID LEUKAEMIA
     Dosage: 300 MG, BID
     Route: 048
     Dates: start: 20110414, end: 20120112
  2. AMN107 [Suspect]
     Dosage: UNK
     Route: 048
     Dates: start: 20120116

REACTIONS (1)
  - Coronary artery disease [Recovered/Resolved]
